FAERS Safety Report 4522598-5 (Version None)
Quarter: 2004Q4

REPORT INFORMATION
  Report Type: 
  Country: None (occurrence: None)
  Receive Date: 20041207
  Receipt Date: 20041130
  Transmission Date: 20050328
  Serious: Yes (Life-Threatening, Hospitalization)
  Sender: FDA-Public Use
  Company Number: 2004S1000682

PATIENT
  Age: 14 Year
  Sex: Female
  Weight: 52 kg

DRUGS (6)
  1. INOMAX [Suspect]
     Indication: VASODILATION PROCEDURE
     Dosage: 80 PPM;CONT;INH
     Route: 055
     Dates: start: 20041130, end: 20041130
  2. VECURONIUM [Concomitant]
  3. PROPOFOL [Concomitant]
  4. ONDANSETRON [Concomitant]
  5. PARACETAMOL [Concomitant]
  6. RINGER'S [Concomitant]

REACTIONS (1)
  - RESUSCITATION [None]
